FAERS Safety Report 7040127-1 (Version None)
Quarter: 2010Q4

REPORT INFORMATION
  Report Type: 
  Country: None (occurrence: None)
  Receive Date: 20101006
  Receipt Date: 20100927
  Transmission Date: 20110411
  Serious: Yes (Death, Hospitalization)
  Sender: FDA-Public Use
  Company Number: 2010US003487

PATIENT
  Age: 47 Year
  Sex: Male

DRUGS (6)
  1. PROGRAF [Suspect]
     Indication: LIVER TRANSPLANT
     Dosage: 3 MG, UID/QD, ORAL
     Route: 048
     Dates: end: 20100525
  2. PROZAC [Concomitant]
  3. LEVOTHYROXINE SODIUM [Concomitant]
  4. PROMETHAZINE [Concomitant]
  5. SENNA (SENNOSIDE A+B) [Concomitant]
  6. MORPHINE [Concomitant]

REACTIONS (6)
  - BRONCHITIS [None]
  - CANDIDA TEST POSITIVE [None]
  - CAPILLARY DISORDER [None]
  - FLUID OVERLOAD [None]
  - INTERSTITIAL LUNG DISEASE [None]
  - PLEURAL EFFUSION [None]
